FAERS Safety Report 6199919 (Version 5)
Quarter: 2013Q2

REPORT INFORMATION
  Report Type: Spontaneous
  Country: US (occurrence: US)
  Receive Date: 20061221
  Receipt Date: 20120515
  Transmission Date: 20140414
  Serious: Yes (Other)
  Sender: FDA-Public Use
  Company Number: PHEH2006US15202

PATIENT
  Age: 43 Year
  Sex: Female
  Weight: 81.6 kg

DRUGS (4)
  1. ZOMETA (ZOLEDRONATE) SOLUTION FOR INJECTION [Suspect]
     Indication: METASTASES TO SPINE
     Dosage: UNK
     Dates: start: 2004, end: 200609
  2. RADIATION THERAPY [Concomitant]
     Indication: METASTASES TO BONE
     Dosage: UNK
     Dates: start: 2004
  3. FEMARA (LETROZOLE) [Concomitant]
     Dosage: UNK
     Dates: end: 200609
  4. FEMARA [Concomitant]
     Dosage: UNK

REACTIONS (27)
  - OSTEONECROSIS [Not Recovered/Not Resolved]
  - GENERAL PHYSICAL HEALTH DETERIORATION [Unknown]
  - PAIN [Unknown]
  - ANXIETY [Unknown]
  - DECREASED INTEREST [Unknown]
  - OSTEOLYSIS [None]
  - JAW DISORDER [Not Recovered/Not Resolved]
  - BONE SWELLING [Not Recovered/Not Resolved]
  - BONE DISORDER [None]
  - LOOSE TOOTH [None]
  - PRIMARY SEQUESTRUM [None]
  - EXCESSIVE GRANULATION TISSUE [None]
  - THERAPEUTIC PROCEDURE [None]
  - PURULENT DISCHARGE [None]
  - ALPHA HAEMOLYTIC STREPTOCOCCAL INFECTION [None]
  - ENDODONTIC PROCEDURE [None]
  - TOOTH INFECTION [None]
  - POST PROCEDURAL DRAINAGE [None]
  - TOOTH EXTRACTION [None]
  - Device failure [None]
  - IMPAIRED HEALING [None]
  - ORAL CAVITY FISTULA [None]
  - DENTAL IMPLANTATION [None]
  - TOOTH IMPACTED [None]
  - TOOTHACHE [None]
  - SWELLING FACE [None]
  - TOOTH DISORDER [None]
